FAERS Safety Report 4946996-0 (Version None)
Quarter: 2006Q1

REPORT INFORMATION
  Report Type: 
  Country: None (occurrence: None)
  Receive Date: 20060201
  Receipt Date: 20051208
  Transmission Date: 20060701
  Serious: No
  Sender: FDA-Public Use
  Company Number: 2005PV005630

PATIENT
  Age: 48 Year
  Sex: Female
  Weight: 125.1928 kg

DRUGS (15)
  1. BYETTA [Suspect]
     Indication: DIABETES MELLITUS NON-INSULIN-DEPENDENT
     Dosage: SEE IMAGE
     Route: 058
     Dates: start: 20050801, end: 20050901
  2. BYETTA [Suspect]
     Indication: DIABETES MELLITUS NON-INSULIN-DEPENDENT
     Dosage: SEE IMAGE
     Route: 058
     Dates: start: 20050901
  3. METFORMIN HYDROCHLORIDE [Concomitant]
  4. AVANDIA [Concomitant]
  5. CIMBALTA [Concomitant]
  6. HYDROCHLOROTHIAZIDE [Concomitant]
  7. CHROMIUM PICOLINATE [Concomitant]
  8. PARAGON PLUS [Concomitant]
  9. ESTRATAB [Concomitant]
  10. DIOVAN [Concomitant]
  11. QUININE SULFATE [Concomitant]
  12. RANITIDINE [Concomitant]
  13. SINGULAIR [Concomitant]
  14. LASIX [Concomitant]
  15. VITAMIN CAP [Concomitant]

REACTIONS (3)
  - INJECTION SITE ERYTHEMA [None]
  - INJECTION SITE HAEMORRHAGE [None]
  - PSORIASIS [None]
